FAERS Safety Report 4816026-X (Version None)
Quarter: 2005Q4

REPORT INFORMATION
  Report Type: 
  Country: None (occurrence: None)
  Receive Date: 20051026
  Receipt Date: 20051010
  Transmission Date: 20060501
  Serious: Yes (Hospitalization, Other)
  Sender: FDA-Public Use
  Company Number: USA0508106831

PATIENT
  Age: 87 Year
  Sex: Female

DRUGS (7)
  1. FORTEO [Suspect]
     Indication: OSTEOPOROSIS
     Dates: start: 20050826, end: 20050828
  2. CAPTOPRIL [Concomitant]
  3. CALCIUM AND VITAMIN D [Concomitant]
  4. MULTI-VITAMIN [Concomitant]
  5. ADVAIR DISKUS 100/50 [Concomitant]
  6. ARICEPT          (CONEPEZIL HYDROCHLORIDE) [Concomitant]
  7. COMBIVENT [Concomitant]

REACTIONS (7)
  - ABASIA [None]
  - ASTHENIA [None]
  - CEREBRAL INFARCTION [None]
  - CEREBROVASCULAR ACCIDENT [None]
  - DIZZINESS [None]
  - DYSSTASIA [None]
  - HEADACHE [None]
